FAERS Safety Report 5981071-8 (Version None)
Quarter: 2008Q4

REPORT INFORMATION
  Report Type: 
  Country: None (occurrence: None)
  Receive Date: 20081205
  Receipt Date: 20081030
  Transmission Date: 20090506
  Serious: No
  Sender: FDA-Public Use
  Company Number: A0754219A

PATIENT
  Age: 45 Year
  Sex: Male

DRUGS (1)
  1. COMMIT [Suspect]

REACTIONS (3)
  - HYPERSENSITIVITY [None]
  - ORAL PRURITUS [None]
  - PARAESTHESIA ORAL [None]
